FAERS Safety Report 5311340-6 (Version None)
Quarter: 2007Q2

REPORT INFORMATION
  Report Type: 
  Country: None (occurrence: None)
  Receive Date: 20070430
  Receipt Date: 20070420
  Transmission Date: 20071010
  Serious: Yes (Other)
  Sender: FDA-Public Use
  Company Number: PHEH2007US05845

PATIENT
  Sex: Female

DRUGS (1)
  1. ZELNORM [Suspect]
     Indication: IRRITABLE BOWEL SYNDROME
     Dosage: UNK, QD
     Route: 048
     Dates: start: 20030101, end: 20070406

REACTIONS (4)
  - HEADACHE [None]
  - HYPOAESTHESIA [None]
  - SLUGGISHNESS [None]
  - TRANSIENT ISCHAEMIC ATTACK [None]
